FAERS Safety Report 16302795 (Version 2)
Quarter: 2019Q2

REPORT INFORMATION
  Report Type: Report from Study
  Country: DE (occurrence: DE)
  Receive Date: 20190513
  Receipt Date: 20190530
  Transmission Date: 20190711
  Serious: Yes (Hospitalization)
  Sender: FDA-Public Use
  Company Number: DE-ROCHE-2300920

PATIENT
  Age: 79 Year
  Sex: Male
  Weight: 61 kg

DRUGS (4)
  1. MOVICOL [Concomitant]
     Active Substance: POLYETHYLENE GLYCOL 3350\POTASSIUM CHLORIDE\SODIUM BICARBONATE\SODIUM CHLORIDE
     Indication: PROPHYLAXIS
     Route: 048
  2. MEMANTIN [Concomitant]
     Active Substance: MEMANTINE
     Indication: DEMENTIA
     Route: 048
  3. SERTRALIN [SERTRALINE] [Concomitant]
     Indication: ADJUSTMENT DISORDER WITH DEPRESSED MOOD
     Route: 048
  4. ATEZOLIZUMAB. [Suspect]
     Active Substance: ATEZOLIZUMAB
     Indication: NON-SMALL CELL LUNG CANCER
     Route: 042
     Dates: start: 20181025, end: 20190117

REACTIONS (4)
  - Frontotemporal dementia [Not Recovered/Not Resolved]
  - Mass [Recovered/Resolved]
  - Headache [Recovered/Resolved]
  - Diarrhoea [Recovered/Resolved]

NARRATIVE: CASE EVENT DATE: 20181027
